FAERS Safety Report 21782625 (Version 2)
Quarter: 2023Q1

REPORT INFORMATION
  Report Type: Spontaneous
  Country: JP (occurrence: JP)
  Receive Date: 20221227
  Receipt Date: 20230226
  Transmission Date: 20230418
  Serious: Yes (Death, Hospitalization, Other)
  Sender: FDA-Public Use
  Company Number: JP-KYOWAKIRIN-2022AKK019645

PATIENT
  Age: 49 Year
  Sex: Female

DRUGS (12)
  1. PEGFILGRASTIM [Suspect]
     Active Substance: PEGFILGRASTIM
     Indication: Colony stimulating factor therapy
     Dosage: 3.6 MILLIGRAM, Q2WK
     Route: 040
     Dates: start: 20190131, end: 20190314
  2. DOXORUBICIN HYDROCHLORIDE [Suspect]
     Active Substance: DOXORUBICIN HYDROCHLORIDE
     Indication: Breast cancer
     Dosage: 93 MILLIGRAM, Q2WK
     Route: 042
     Dates: start: 20190130, end: 20190313
  3. CYCLOPHOSPHAMIDE [Suspect]
     Active Substance: CYCLOPHOSPHAMIDE
     Indication: Breast cancer
     Dosage: 930 MILLIGRAM, Q2WK
     Route: 042
     Dates: start: 20190130, end: 20190313
  4. EMEND [Concomitant]
     Active Substance: APREPITANT
     Indication: Prophylaxis of nausea and vomiting
     Dosage: 80 MILLIGRAM, QD
     Route: 048
     Dates: start: 20190131, end: 20190315
  5. ALOXI [Concomitant]
     Active Substance: PALONOSETRON HYDROCHLORIDE
     Indication: Prophylaxis of nausea and vomiting
     Dosage: 0.75 MILLIGRAM, Q2WK
     Route: 042
     Dates: start: 20190130, end: 20190313
  6. DEXAMETHASONE SODIUM PHOSPHATE [Concomitant]
     Active Substance: DEXAMETHASONE SODIUM PHOSPHATE
     Indication: Prophylaxis of nausea and vomiting
     Dosage: 9.9 MILLIGRAM, Q2WK
     Route: 042
     Dates: start: 20190130, end: 20190313
  7. DEXAMETHASONE SODIUM PHOSPHATE [Concomitant]
     Active Substance: DEXAMETHASONE SODIUM PHOSPHATE
     Dosage: 8 MILLIGRAM, QD
     Route: 048
     Dates: start: 20190131, end: 20190316
  8. MS CONTIN [Concomitant]
     Active Substance: MORPHINE SULFATE
     Indication: Cancer pain
     Dosage: 10 MILLIGRAM, BID
     Route: 048
     Dates: start: 20190125
  9. SYMPROIC [Concomitant]
     Active Substance: NALDEMEDINE
     Indication: Constipation
     Dosage: 0.2 MILLIGRAM, QD
     Route: 048
     Dates: start: 20190126
  10. AVELOX [Concomitant]
     Active Substance: MOXIFLOXACIN HYDROCHLORIDE
     Indication: Cystitis
     Dosage: 400 MILLIGRAM, QD
     Route: 048
     Dates: start: 20190320, end: 20190325
  11. VONOPRAZAN FUMARATE [Concomitant]
     Active Substance: VONOPRAZAN FUMARATE
     Indication: Gastritis prophylaxis
     Dosage: 10 MILLIGRAM, QD
     Route: 048
     Dates: start: 20190130
  12. MAGNESIUM OXIDE [Concomitant]
     Active Substance: MAGNESIUM OXIDE
     Indication: Constipation
     Dosage: 330 MILLIGRAM, TID
     Route: 048
     Dates: start: 20190125

REACTIONS (2)
  - Interstitial lung disease [Recovered/Resolved]
  - Brain neoplasm [Fatal]

NARRATIVE: CASE EVENT DATE: 20190329
